FAERS Safety Report 8133546-3 (Version None)
Quarter: 2012Q1

REPORT INFORMATION
  Report Type: 
  Country: None (occurrence: None)
  Receive Date: 20120213
  Receipt Date: 20120210
  Transmission Date: 20120608
  Serious: Yes (Other)
  Sender: FDA-Public Use
  Company Number: US-TEVA-321979USA

PATIENT
  Sex: Male

DRUGS (1)
  1. QVAR 40 [Suspect]
     Indication: ASTHMA
     Dosage: AS NEEDED
     Route: 055
     Dates: start: 20120129

REACTIONS (1)
  - PSYCHOTIC DISORDER [None]
